FAERS Safety Report 5295463-6 (Version None)
Quarter: 2007Q2

REPORT INFORMATION
  Report Type: 
  Country: None (occurrence: None)
  Receive Date: 20070412
  Receipt Date: 20070403
  Transmission Date: 20071010
  Serious: Yes (Other)
  Sender: FDA-Public Use
  Company Number: US-PFIZER INC-2007027503

PATIENT
  Sex: Male
  Weight: 136.1 kg

DRUGS (6)
  1. LIPITOR [Suspect]
     Indication: BLOOD CHOLESTEROL INCREASED
     Dates: start: 20060101, end: 20061201
  2. HYZAAR [Concomitant]
  3. LASIX [Concomitant]
  4. WELLBUTRIN [Concomitant]
  5. NORVASC [Concomitant]
  6. NEXIUM [Concomitant]

REACTIONS (6)
  - ARTHRALGIA [None]
  - IMMOBILE [None]
  - MYALGIA [None]
  - OEDEMA PERIPHERAL [None]
  - RASH [None]
  - WEIGHT INCREASED [None]
